FAERS Safety Report 9277050 (Version 1)
Quarter: 2013Q2

REPORT INFORMATION
  Report Type: Spontaneous
  Country: NZ (occurrence: NZ)
  Receive Date: 20130507
  Receipt Date: 20130507
  Transmission Date: 20140414
  Serious: Yes (Hospitalization)
  Sender: FDA-Public Use
  Company Number: NZ-BAXTER-2013BAX015873

PATIENT
  Age: 59 Year
  Sex: Female

DRUGS (2)
  1. DIANEAL LOW CALCIUM WITH 1.5 PERCENT W/V GLUCOSE PERITONEAL DIALYSIS S [Suspect]
     Indication: PERITONEAL DIALYSIS
     Route: 033
  2. DIANEAL LOW CALCIUM WITH 2.5 PERCENT W/V GLUCOSE PERITONEAL DIALYSIS S [Suspect]
     Indication: PERITONEAL DIALYSIS
     Route: 033

REACTIONS (1)
  - Blood potassium decreased [Unknown]
